FAERS Safety Report 5613394-6 (Version None)
Quarter: 2008Q1

REPORT INFORMATION
  Report Type: 
  Country: None (occurrence: None)
  Receive Date: 20080129
  Receipt Date: 20080109
  Transmission Date: 20080703
  Serious: Yes (Hospitalization)
  Sender: FDA-Public Use
  Company Number: 2007BM000207

PATIENT
  Age: 73 Year
  Sex: Female
  Weight: 57 kg

DRUGS (3)
  1. PREDNISOLONE (PREDNISOLONE) [Suspect]
     Indication: TAKAYASU'S ARTERITIS
     Dosage: 30 MG; QD;, 7.5 MG;QD;
     Dates: end: 20000301
  2. PREDNISOLONE (PREDNISOLONE) [Suspect]
     Indication: TAKAYASU'S ARTERITIS
     Dosage: 30 MG; QD;, 7.5 MG;QD;
     Dates: end: 20000717
  3. ORAPRED [Suspect]

REACTIONS (11)
  - BRONCHITIS [None]
  - DYSPNOEA EXERTIONAL [None]
  - MALAISE [None]
  - MEMORY IMPAIRMENT [None]
  - PLEURAL EFFUSION [None]
  - PULMONARY TUBERCULOSIS [None]
  - PYREXIA [None]
  - RENAL IMPAIRMENT [None]
  - SPUTUM CULTURE POSITIVE [None]
  - TUBERCULOSIS [None]
  - TUBERCULOUS PLEURISY [None]
